FAERS Safety Report 8956724 (Version 1)
Quarter: 2012Q4

REPORT INFORMATION
  Report Type: 
  Country: US (occurrence: US)
  Receive Date: 20121211
  Receipt Date: 20121211
  Transmission Date: 20130627
  Serious: Yes (Other)
  Sender: FDA-Public Use
  Company Number: US-009507513-1008USA03712

PATIENT

DRUGS (3)
  1. JANUVIA [Suspect]
     Route: 048
  2. GLIPIZIDE [Suspect]
     Dosage: 20 mg, qd
  3. MK-9378 [Suspect]
     Dosage: 2000 mg, qd

REACTIONS (2)
  - Therapeutic response unexpected [Unknown]
  - Blood glucose increased [Unknown]
